FAERS Safety Report 10508686 (Version 1)
Quarter: 2014Q4

REPORT INFORMATION
  Report Type: Spontaneous
  Country: US (occurrence: US)
  Receive Date: 20141009
  Receipt Date: 20141009
  Transmission Date: 20150528
  Serious: Yes (Hospitalization, Other)
  Sender: FDA-Public Use
  Company Number: US-ASTELLAS-2014US011256

PATIENT
  Sex: Female

DRUGS (7)
  1. STEROIDS [Concomitant]
     Active Substance: UNSPECIFIED INGREDIENT
     Indication: PRODUCT USED FOR UNKNOWN INDICATION
     Dosage: UNK, UNKNOWN FREQ.
     Route: 065
  2. ASTAGRAF XL [Suspect]
     Active Substance: TACROLIMUS
     Indication: PROPHYLAXIS AGAINST TRANSPLANT REJECTION
     Route: 065
     Dates: start: 20140812, end: 20140813
  3. ASTAGRAF XL [Suspect]
     Active Substance: TACROLIMUS
     Route: 065
     Dates: start: 20140821
  4. ASTAGRAF XL [Suspect]
     Active Substance: TACROLIMUS
     Route: 065
     Dates: start: 20140818
  5. CELLCEPT [Concomitant]
     Active Substance: MYCOPHENOLATE MOFETIL\MYCOPHENOLATE MOFETIL HYDROCHLORIDE
     Indication: PRODUCT USED FOR UNKNOWN INDICATION
     Dosage: UNK UNK, UNKNOWN FREQ.
     Route: 065
     Dates: start: 201408
  6. ASTAGRAF XL [Suspect]
     Active Substance: TACROLIMUS
     Route: 065
     Dates: start: 20140814, end: 20140815
  7. THYMOGLOBULIN [Concomitant]
     Active Substance: LAPINE T-LYMPHOCYTE IMMUNE GLOBULIN
     Indication: PRODUCT USED FOR UNKNOWN INDICATION
     Dosage: UNK UNK, UNKNOWN FREQ.
     Route: 065
     Dates: start: 201408, end: 201408

REACTIONS (1)
  - Drug level fluctuating [Unknown]

NARRATIVE: CASE EVENT DATE: 201408
